FAERS Safety Report 8200540-3 (Version None)
Quarter: 2012Q1

REPORT INFORMATION
  Report Type: 
  Country: None (occurrence: None)
  Receive Date: 20120302
  Receipt Date: 20120216
  Transmission Date: 20120608
  Serious: Yes (Hospitalization)
  Sender: FDA-Public Use
  Company Number: 2012PROUSA01061

PATIENT
  Age: 73 Year
  Sex: Male
  Weight: 93.4 kg

DRUGS (9)
  1. FENTANYL [Concomitant]
  2. LEXAPRO [Concomitant]
  3. HYDROCODONE BITARTRATE [Concomitant]
  4. SIMVASTATIN [Concomitant]
  5. PROVENGE [Suspect]
     Indication: PROSTATE CANCER METASTATIC
     Dosage: 250 ML, SINGLE, INTRAVENOUS
     Route: 042
     Dates: start: 20120130, end: 20120130
  6. ACETAMINOPHEN [Concomitant]
  7. WARFARIN SODIUM [Concomitant]
  8. PLAVIX [Concomitant]
  9. PERCOCET [Concomitant]

REACTIONS (8)
  - PELVIC FRACTURE [None]
  - FATIGUE [None]
  - PATHOLOGICAL FRACTURE [None]
  - OSTEOARTHRITIS [None]
  - OSTEOSCLEROSIS [None]
  - METASTASES TO BONE [None]
  - INADEQUATE ANALGESIA [None]
  - NEOPLASM PROGRESSION [None]
